FAERS Safety Report 17798363 (Version 2)
Quarter: 2020Q2

REPORT INFORMATION
  Report Type: Spontaneous
  Country: JP (occurrence: JP)
  Receive Date: 20200518
  Receipt Date: 20200629
  Transmission Date: 20200714
  Serious: Yes (Other)
  Sender: FDA-Public Use
  Company Number: JP-JNJFOC-20200517000

PATIENT
  Age: 64 Year
  Sex: Male
  Weight: 51.4 kg

DRUGS (5)
  1. XALKORI [Suspect]
     Active Substance: CRIZOTINIB
     Dosage: 250 MILLIGRAM, EVERY 12 HRS
     Route: 048
     Dates: start: 20191104, end: 20191113
  2. XALKORI [Suspect]
     Active Substance: CRIZOTINIB
     Indication: LUNG NEOPLASM MALIGNANT
     Dosage: 250 MILLIGRAM, EVERY 12 HRS
     Route: 048
     Dates: start: 20191024, end: 20191031
  3. LOXOPROFEN SODIUM HYDRATE [Concomitant]
     Active Substance: LOXOPROFEN SODIUM DIHYDRATE
     Indication: PAIN
     Dosage: 60 MILLIGRAM, EVERY 8 HRS
     Route: 065
     Dates: start: 20191023, end: 20191031
  4. TRAMADOL HYDROCHLORIDE. [Suspect]
     Active Substance: TRAMADOL HYDROCHLORIDE
     Indication: PAIN
     Dosage: 25 MILLIGRAM, EVERY 6 HRS
     Route: 048
     Dates: start: 20191024, end: 20191031
  5. REBAMIPIDE [Concomitant]
     Active Substance: REBAMIPIDE
     Indication: PAIN
     Dosage: 300 MILLIGRAM
     Route: 065
     Dates: start: 20191023, end: 20191031

REACTIONS (3)
  - Decreased appetite [Recovering/Resolving]
  - Vomiting [Recovering/Resolving]
  - Nausea [Recovered/Resolved]

NARRATIVE: CASE EVENT DATE: 20191025
